FAERS Safety Report 21848248 (Version 1)
Quarter: 2023Q1

REPORT INFORMATION
  Report Type: Spontaneous
  Country: FR (occurrence: FR)
  Receive Date: 20230111
  Receipt Date: 20230111
  Transmission Date: 20230418
  Serious: Yes (Hospitalization)
  Sender: FDA-Public Use
  Company Number: None

PATIENT
  Age: 72 Year
  Sex: Male
  Weight: 94 kg

DRUGS (1)
  1. VFEND [Suspect]
     Active Substance: VORICONAZOLE
     Indication: Lower respiratory tract infection fungal
     Dosage: 800 MG, DAILY (DIVIDED IN 2 INTAKES DAILY)
     Route: 048
     Dates: start: 20211105, end: 20211202

REACTIONS (4)
  - Confusional state [Recovered/Resolved]
  - Coma [Recovered/Resolved]
  - Cerebellar syndrome [Recovered/Resolved]
  - Hallucination [Recovered/Resolved]

NARRATIVE: CASE EVENT DATE: 20211111
